FAERS Safety Report 22365711 (Version 1)
Quarter: 2023Q2

REPORT INFORMATION
  Report Type: Report from Study
  Country: GB (occurrence: GB)
  Receive Date: 20230525
  Receipt Date: 20230525
  Transmission Date: 20230721
  Serious: Yes (Hospitalization, Other)
  Sender: FDA-Public Use
  Company Number: GB-CELLTRION INC.-2023GB010638

PATIENT

DRUGS (58)
  1. TRASTUZUMAB [Suspect]
     Active Substance: TRASTUZUMAB
     Indication: Product used for unknown indication
     Dosage: 493 MG EVERY 3 WEEKS
     Route: 042
     Dates: start: 20160923, end: 20160923
  2. TRASTUZUMAB [Suspect]
     Active Substance: TRASTUZUMAB
     Indication: Breast cancer metastatic
     Dosage: 493 MG, EVERY 3 WEEKS
     Route: 042
     Dates: start: 20160923, end: 20160923
  3. TRASTUZUMAB [Suspect]
     Active Substance: TRASTUZUMAB
     Dosage: 588 MG, EVERY 3 WEEKS
     Route: 042
     Dates: start: 20180924, end: 20190520
  4. TRASTUZUMAB [Suspect]
     Active Substance: TRASTUZUMAB
     Dosage: 588 MG,EVERY 3 WEEKS
     Route: 042
     Dates: start: 20180924, end: 20190520
  5. TRASTUZUMAB [Suspect]
     Active Substance: TRASTUZUMAB
     Dosage: 483 MG, EVERY 3 WEEKS
     Route: 042
     Dates: start: 20161018, end: 20170428
  6. TRASTUZUMAB [Suspect]
     Active Substance: TRASTUZUMAB
     Dosage: 483 MG EVERY 3 WEEKS
     Route: 042
     Dates: start: 20161018, end: 20170428
  7. TRASTUZUMAB [Suspect]
     Active Substance: TRASTUZUMAB
     Dosage: 588 MG, EVERY 3 WEEKS
     Route: 042
     Dates: start: 20191015
  8. TRASTUZUMAB [Suspect]
     Active Substance: TRASTUZUMAB
     Dosage: 588 MG, EVERY 3 WEEKS
     Route: 042
     Dates: start: 20191015
  9. TRASTUZUMAB [Suspect]
     Active Substance: TRASTUZUMAB
     Dosage: 504 MG, EVERY 3 WEEKS
     Route: 042
     Dates: start: 20190610, end: 20190902
  10. TRASTUZUMAB [Suspect]
     Active Substance: TRASTUZUMAB
     Dosage: 504 MG, EVERY 3 WEEKS
     Route: 042
     Dates: start: 20190610, end: 20190902
  11. TRASTUZUMAB [Suspect]
     Active Substance: TRASTUZUMAB
     Dosage: 504 MG, EVERY 3 WEEKS
     Route: 042
     Dates: start: 20190610, end: 20190902
  12. TRASTUZUMAB [Suspect]
     Active Substance: TRASTUZUMAB
     Dosage: 546 MG, EVERY 3 WEEKS
     Route: 042
     Dates: start: 20180521, end: 20180903
  13. TRASTUZUMAB [Suspect]
     Active Substance: TRASTUZUMAB
     Dosage: 546 MG,EVERY 3 WEEKS
     Route: 042
     Dates: start: 20180521, end: 20180903
  14. TRASTUZUMAB [Suspect]
     Active Substance: TRASTUZUMAB
     Dosage: 525 MG,EVERY 3 WEEKS
     Route: 042
     Dates: start: 20160701, end: 20160812
  15. TRASTUZUMAB [Suspect]
     Active Substance: TRASTUZUMAB
     Dosage: 525 MG, EVERY 3 WEEKS
     Route: 042
     Dates: start: 20160701, end: 20160812
  16. TRASTUZUMAB [Suspect]
     Active Substance: TRASTUZUMAB
     Dosage: UNK, EVERY 3 WEEKS
     Route: 042
     Dates: start: 20160516, end: 20160610
  17. TRASTUZUMAB [Suspect]
     Active Substance: TRASTUZUMAB
     Dosage: UNK, EVERY 3 WEEKS
     Route: 042
     Dates: start: 20160516, end: 20160610
  18. TRASTUZUMAB [Suspect]
     Active Substance: TRASTUZUMAB
     Dosage: 504 MG, EVERY 3 WEEKS
     Route: 042
     Dates: start: 20170522, end: 20180219
  19. TRASTUZUMAB [Suspect]
     Active Substance: TRASTUZUMAB
     Dosage: 504 MG EVERY 3 WEEKS
     Route: 042
     Dates: start: 20170522, end: 20180219
  20. TRASTUZUMAB [Suspect]
     Active Substance: TRASTUZUMAB
     Dosage: 525 MG,EVERY 3 WEEKS
     Route: 042
     Dates: start: 20180312, end: 20180430
  21. TRASTUZUMAB [Suspect]
     Active Substance: TRASTUZUMAB
     Dosage: 525 MG, EVERY 3 WEEKS
     Route: 042
     Dates: start: 20180312, end: 20180430
  22. TRASTUZUMAB [Suspect]
     Active Substance: TRASTUZUMAB
     Dosage: 504 MG, EVERY 3 WEEKS
     Route: 042
     Dates: start: 20160902, end: 20160902
  23. TRASTUZUMAB [Suspect]
     Active Substance: TRASTUZUMAB
     Dosage: 504 MG EVERY 3 WEEKS
     Route: 042
     Dates: start: 20160902, end: 20160902
  24. ANASTROZOLE [Suspect]
     Active Substance: ANASTROZOLE
     Indication: Breast cancer metastatic
     Dosage: 1 MG, DAILY
     Route: 048
     Dates: start: 20161012
  25. DOCETAXEL [Suspect]
     Active Substance: DOCETAXEL
     Indication: Breast cancer metastatic
     Dosage: UNK, EVERY 3 WEEK
     Dates: start: 20160516, end: 20160610
  26. DOCETAXEL [Suspect]
     Active Substance: DOCETAXEL
     Dosage: UNK, EVERY 3 WEEK
     Dates: start: 20160516, end: 20160610
  27. DOCETAXEL [Suspect]
     Active Substance: DOCETAXEL
     Dosage: UNK, EVERY 3 WEEKS
     Dates: start: 20160701, end: 20160902
  28. DOCETAXEL [Suspect]
     Active Substance: DOCETAXEL
     Dosage: UNK, EVERY 3 WEEKS
     Dates: start: 20160701, end: 20160902
  29. PERTUZUMAB [Suspect]
     Active Substance: PERTUZUMAB
     Indication: Breast cancer metastatic
     Dosage: 420 MG EVERY 3 WEEKS
     Route: 042
     Dates: start: 20160701, end: 20161215
  30. PERTUZUMAB [Suspect]
     Active Substance: PERTUZUMAB
     Dosage: 420 MG,EVERY 3 WEEKS
     Route: 042
     Dates: start: 20160701, end: 20161215
  31. PERTUZUMAB [Suspect]
     Active Substance: PERTUZUMAB
     Dosage: 420 MG, EVERY 3 WEEKS
     Route: 042
     Dates: start: 20160701, end: 20161215
  32. PERTUZUMAB [Suspect]
     Active Substance: PERTUZUMAB
     Dosage: 420 MG,EVERY 3 WEEKS
     Route: 042
     Dates: start: 20160701, end: 20161215
  33. PERTUZUMAB [Suspect]
     Active Substance: PERTUZUMAB
     Dosage: 840MG (DOSAGE TEXT: OTHER)
     Route: 042
     Dates: start: 20210127, end: 20210127
  34. PERTUZUMAB [Suspect]
     Active Substance: PERTUZUMAB
     Dosage: 840MG 840MG (DOSAGE TEXT: OTHER)
     Route: 042
     Dates: start: 20210127, end: 20210127
  35. PERTUZUMAB [Suspect]
     Active Substance: PERTUZUMAB
     Dosage: 840MG 840MG (DOSAGE TEXT: OTHER)
     Route: 042
     Dates: start: 20210127, end: 20210127
  36. PERTUZUMAB [Suspect]
     Active Substance: PERTUZUMAB
     Dosage: 840MG 840MG (DOSAGE TEXT: OTHER)
     Route: 042
     Dates: start: 20210127, end: 20210127
  37. PERTUZUMAB [Suspect]
     Active Substance: PERTUZUMAB
     Dosage: 1 UNK EVERY 3 WEEKS
     Route: 042
     Dates: start: 20160516, end: 20160610
  38. PERTUZUMAB [Suspect]
     Active Substance: PERTUZUMAB
     Dosage: 1 UNK EVERY 3 WEEKS
     Route: 042
     Dates: start: 20160516, end: 20160610
  39. PERTUZUMAB [Suspect]
     Active Substance: PERTUZUMAB
     Dosage: 1 UNK EVERY 3 WEEKS
     Route: 042
     Dates: start: 20160516, end: 20160610
  40. PERTUZUMAB [Suspect]
     Active Substance: PERTUZUMAB
     Dosage: 1 UNK EVERY 3 WEEKS
     Route: 042
     Dates: start: 20160516, end: 20160610
  41. PERTUZUMAB [Suspect]
     Active Substance: PERTUZUMAB
     Dosage: 420 MG, EVERY 3 WEEKS
     Route: 042
     Dates: start: 20210217
  42. PERTUZUMAB [Suspect]
     Active Substance: PERTUZUMAB
     Dosage: 420 MG,EVERY 3 WEEKS
     Route: 042
     Dates: start: 20210217
  43. PERTUZUMAB [Suspect]
     Active Substance: PERTUZUMAB
     Dosage: 420 MG, EVERY 3 WEEKS
     Route: 042
     Dates: start: 20210217
  44. PERTUZUMAB [Suspect]
     Active Substance: PERTUZUMAB
     Dosage: 420 MG, EVERY 3 WEEKS
     Route: 042
     Dates: start: 20210217
  45. CALCIUM CARBONATE\CHOLECALCIFEROL [Concomitant]
     Active Substance: CALCIUM CARBONATE\CHOLECALCIFEROL
     Dosage: 1 QD, TO REPLACE CALCIUM IN BONES DUE TO BONE METS
     Route: 048
     Dates: start: 20161012
  46. CHLORPHENIRAMINE MALEATE [Concomitant]
     Active Substance: CHLORPHENIRAMINE MALEATE
     Dosage: 10 MG
     Route: 042
     Dates: start: 20160701, end: 20160902
  47. DENOSUMAB [Concomitant]
     Active Substance: DENOSUMAB
     Dosage: 6 WEEKLY
     Route: 058
     Dates: start: 20160706
  48. BENZYDAMINE HYDROCHLORIDE [Concomitant]
     Active Substance: BENZYDAMINE HYDROCHLORIDE
     Dosage: 10 ML
     Route: 048
     Dates: start: 20160701, end: 20160902
  49. DOXYCYCLINE [Concomitant]
     Active Substance: DOXYCYCLINE
     Indication: Lower respiratory tract infection
     Dosage: UNK
     Route: 048
     Dates: start: 201708
  50. HYDROCORTISONE [Concomitant]
     Active Substance: HYDROCORTISONE
     Dosage: EVERY 3 WEEKS
     Route: 042
     Dates: start: 20160701, end: 20160902
  51. LOSARTAN [Concomitant]
     Active Substance: LOSARTAN
     Dosage: 50 MG, QD
     Route: 048
  52. OMEPRAZOLE MAGNESIUM [Concomitant]
     Active Substance: OMEPRAZOLE MAGNESIUM
     Dosage: 10 MG, QD
     Route: 048
  53. METOCLOPRAMIDE [Concomitant]
     Active Substance: METOCLOPRAMIDE
     Dosage: 10 MG, PRN
     Route: 048
     Dates: start: 20160701, end: 20160902
  54. CHLORPHENIRAMINE MALEATE [Concomitant]
     Active Substance: CHLORPHENIRAMINE MALEATE
     Indication: Pruritus
     Dosage: AS NECESSARY
     Route: 061
     Dates: start: 20180815
  55. SERTRALINE [Concomitant]
     Active Substance: SERTRALINE HYDROCHLORIDE
     Dosage: 50 MG, QD
     Route: 048
  56. ONDANSETRON [Concomitant]
     Active Substance: ONDANSETRON
     Indication: Nausea
     Dosage: UNK
     Route: 048
     Dates: start: 20161012, end: 20161109
  57. HYPROMELLOSES [Concomitant]
     Active Substance: HYPROMELLOSES
     Indication: Eye pain
     Dosage: UNK
     Dates: start: 20160701, end: 20161012
  58. LOPERAMIDE [Concomitant]
     Active Substance: LOPERAMIDE
     Indication: Diarrhoea
     Dosage: UNK
     Route: 048
     Dates: start: 20160831, end: 20161012

REACTIONS (7)
  - Transient ischaemic attack [Recovered/Resolved]
  - Mouth swelling [Unknown]
  - Eye pain [Unknown]
  - Oral pain [Unknown]
  - Cardiac failure [Recovered/Resolved]
  - Nausea [Unknown]
  - Diarrhoea [Unknown]

NARRATIVE: CASE EVENT DATE: 20160810
